FAERS Safety Report 9007098 (Version 2)
Quarter: 2013Q1

REPORT INFORMATION
  Report Type: Spontaneous
  Country: IE (occurrence: IE)
  Receive Date: 20130110
  Receipt Date: 20130131
  Transmission Date: 20140127
  Serious: Yes (Other)
  Sender: FDA-Public Use
  Company Number: IE-PFIZER INC-2013008779

PATIENT
  Age: 87 Year
  Sex: Female

DRUGS (2)
  1. LYRICA [Suspect]
     Indication: SPINAL COLUMN STENOSIS
     Dosage: 75 MG, UNK
  2. LYRICA [Suspect]
     Indication: BACK PAIN

REACTIONS (1)
  - Erythema multiforme [Unknown]
